FAERS Safety Report 8062115-9 (Version None)
Quarter: 2012Q1

REPORT INFORMATION
  Report Type: 
  Country: None (occurrence: None)
  Receive Date: 20120123
  Receipt Date: 20120110
  Transmission Date: 20120608
  Serious: Yes (Hospitalization, Other)
  Sender: FDA-Public Use
  Company Number: US-ELI_LILLY_AND_COMPANY-US201104005508

PATIENT
  Sex: Female

DRUGS (3)
  1. FORTEO [Suspect]
     Indication: OSTEOPOROSIS
     Dosage: 20 UNK, QD
     Route: 065
     Dates: start: 20110311
  2. FORTEO [Suspect]
     Dosage: 20 UG, QD
     Route: 065
  3. FORTEO [Suspect]
     Dosage: 20 UG, QD

REACTIONS (4)
  - MASS [None]
  - HYPERTENSIVE CRISIS [None]
  - STRESS CARDIOMYOPATHY [None]
  - CARDIAC FAILURE CONGESTIVE [None]
